FAERS Safety Report 11500563 (Version 7)
Quarter: 2018Q3

REPORT INFORMATION
  Report Type: Spontaneous
  Country: US (occurrence: US)
  Receive Date: 20150914
  Receipt Date: 20180927
  Transmission Date: 20181010
  Serious: Yes (Hospitalization, Other)
  Sender: FDA-Public Use
  Company Number: US-PFIZER INC-2015293721

PATIENT
  Age: 68 Year
  Sex: Female
  Weight: 69.4 kg

DRUGS (3)
  1. LYRICA [Suspect]
     Active Substance: PREGABALIN
     Indication: PAIN
     Dosage: 75 MG, 2X/DAY
     Dates: start: 20150930
  2. LYRICA [Suspect]
     Active Substance: PREGABALIN
     Indication: ARTHRALGIA
  3. LYRICA [Suspect]
     Active Substance: PREGABALIN
     Indication: PAIN IN EXTREMITY
     Dosage: 1 DF, 2X/DAY (1 CAPSULE)
     Route: 048

REACTIONS (9)
  - Fall [Recovered/Resolved]
  - Pain in extremity [Unknown]
  - Muscle strain [Recovered/Resolved]
  - Pain [Recovered/Resolved]
  - Back pain [Recovered/Resolved]
  - Infection [Unknown]
  - Stress [Unknown]
  - Musculoskeletal pain [Recovered/Resolved]
  - Fracture infection [Recovered/Resolved]

NARRATIVE: CASE EVENT DATE: 20150930
